FAERS Safety Report 7237439-5 (Version None)
Quarter: 2011Q1

REPORT INFORMATION
  Report Type: 
  Country: None (occurrence: None)
  Receive Date: 20110121
  Receipt Date: 20110119
  Transmission Date: 20110831
  Serious: Yes (Life-Threatening)
  Sender: FDA-Public Use
  Company Number: FR-B.I. PHARMACEUTICALS,INC./RIDGEFIELD-2011-FF-00045FF

PATIENT
  Sex: Female

DRUGS (4)
  1. BUPIVACAINE HYDROCHLORIDE [Suspect]
     Indication: SPINAL ANAESTHESIA
     Dosage: 8 MG
     Route: 037
     Dates: start: 20110103, end: 20110103
  2. CLONIDINE HCL [Suspect]
     Indication: SPINAL ANAESTHESIA
     Route: 037
     Dates: start: 20110103, end: 20110103
  3. SUFENTANIL CITRATE [Suspect]
     Indication: SPINAL ANAESTHESIA
     Dosage: 2.5 MG
     Route: 037
     Dates: start: 20110103, end: 20110103
  4. CEFAZOLIN SODIUM [Suspect]
     Indication: SPINAL ANAESTHESIA
     Dosage: 2 G
     Route: 042
     Dates: start: 20110103, end: 20110103

REACTIONS (5)
  - ALTERED STATE OF CONSCIOUSNESS [None]
  - HYPERTHERMIA [None]
  - ENCEPHALITIS [None]
  - MYDRIASIS [None]
  - HEADACHE [None]
